FAERS Safety Report 7984615-X (Version None)
Quarter: 2011Q4

REPORT INFORMATION
  Report Type: 
  Country: None (occurrence: None)
  Receive Date: 20111216
  Receipt Date: 20111208
  Transmission Date: 20120403
  Serious: Yes (Hospitalization)
  Sender: FDA-Public Use
  Company Number: US-ASTRAZENECA-2011SE74108

PATIENT
  Sex: Male

DRUGS (7)
  1. LITHIUM [Concomitant]
     Indication: BIPOLAR DISORDER
     Dosage: 1200 MG
  2. SEROQUEL [Suspect]
     Indication: HALLUCINATION
     Dosage: 300 MG TAKE ONE AND ONE HALF TABLET BY MOUTH AT BED TIME  TAKE ONE HALF TABLET AT NOON, 900 MG
     Route: 048
  3. SEROQUEL [Suspect]
     Indication: PARANOIA
     Dosage: 300 MG TAKE ONE AND ONE HALF TABLET BY MOUTH AT BED TIME  TAKE ONE HALF TABLET AT NOON, 900 MG
     Route: 048
  4. SEROQUEL [Suspect]
     Route: 048
  5. SEROQUEL [Suspect]
     Route: 048
  6. SEROQUEL [Suspect]
     Indication: BIPOLAR DISORDER
     Dosage: 300 MG TAKE ONE AND ONE HALF TABLET BY MOUTH AT BED TIME  TAKE ONE HALF TABLET AT NOON, 900 MG
     Route: 048
  7. SEROQUEL [Suspect]
     Route: 048

REACTIONS (8)
  - DECREASED APPETITE [None]
  - PARANOIA [None]
  - ACTIVITIES OF DAILY LIVING IMPAIRED [None]
  - EMOTIONAL DISTRESS [None]
  - DELUSIONAL DISORDER, UNSPECIFIED TYPE [None]
  - SOMNOLENCE [None]
  - DELUSION [None]
  - HALLUCINATION [None]
